FAERS Safety Report 9519380 (Version 1)
Quarter: 2013Q3

REPORT INFORMATION
  Report Type: Spontaneous
  Country: US (occurrence: None)
  Receive Date: 20130911
  Receipt Date: 20130911
  Transmission Date: 20140515
  Serious: No
  Sender: FDA-Public Use
  Company Number: None

PATIENT
  Age: 37 Year
  Sex: Female

DRUGS (1)
  1. HUMIRA 40 MG ABBVIE [Suspect]
     Indication: RHEUMATOID ARTHRITIS
     Dosage: 40 MG QOW SQ
     Route: 058
     Dates: start: 20130429

REACTIONS (4)
  - Feeling jittery [None]
  - Tremor [None]
  - Flushing [None]
  - Chest discomfort [None]
